FAERS Safety Report 8359990-7 (Version None)
Quarter: 2012Q2

REPORT INFORMATION
  Report Type: 
  Country: None (occurrence: None)
  Receive Date: 20120515
  Receipt Date: 20120509
  Transmission Date: 20120825
  Serious: Yes (Death)
  Sender: FDA-Public Use
  Company Number: PHEH2012US009770

PATIENT
  Sex: Female

DRUGS (2)
  1. EXJADE [Suspect]
     Indication: ACUTE MYELOID LEUKAEMIA
     Dosage: 1500 MG, EVERY DAY
     Route: 048
     Dates: start: 20120417
  2. EXJADE [Suspect]
     Indication: TRANSFUSION REACTION

REACTIONS (1)
  - DEATH [None]
